FAERS Safety Report 8010391-0 (Version None)
Quarter: 2011Q4

REPORT INFORMATION
  Report Type: 
  Country: None (occurrence: None)
  Receive Date: 20111228
  Receipt Date: 20111219
  Transmission Date: 20120403
  Serious: Yes (Other)
  Sender: FDA-Public Use
  Company Number: DE-JNJFOC-20111102145

PATIENT
  Sex: Female
  Weight: 50 kg

DRUGS (6)
  1. NOVALGIN [Concomitant]
     Indication: PAIN
     Route: 048
     Dates: start: 20110920
  2. MARCUMAR [Concomitant]
     Indication: THROMBOSIS PROPHYLAXIS
     Route: 048
  3. METHOCARBAMOL [Concomitant]
     Indication: PAIN
     Route: 048
     Dates: start: 20110920
  4. NALOXONE [Concomitant]
     Indication: PAIN
     Route: 048
  5. NALOXONE [Concomitant]
     Route: 048
     Dates: end: 20110926
  6. PALEXIA RETARD [Suspect]
     Indication: PAIN
     Route: 048
     Dates: start: 20110927

REACTIONS (5)
  - HEMIPARESIS [None]
  - PARAESTHESIA [None]
  - CONFUSIONAL STATE [None]
  - FALL [None]
  - SOMNOLENCE [None]
